FAERS Safety Report 12416615 (Version 1)
Quarter: 2016Q2

REPORT INFORMATION
  Report Type: Spontaneous
  Country: CN (occurrence: CN)
  Receive Date: 20160530
  Receipt Date: 20160530
  Transmission Date: 20160815
  Serious: Yes (Other)
  Sender: FDA-Public Use
  Company Number: CN-JNJFOC-20130514948

PATIENT
  Age: 36 Year
  Sex: Female

DRUGS (1)
  1. SPORANOX [Suspect]
     Active Substance: ITRACONAZOLE
     Indication: ONYCHOMYCOSIS
     Dosage: ONCE DAILY FOR 15 DAY CYCLES
     Route: 048
     Dates: start: 20121005, end: 20121006

REACTIONS (6)
  - Myalgia [Recovered/Resolved]
  - Discomfort [Recovered/Resolved]
  - Anuria [Recovered/Resolved]
  - Dyspnoea [Recovered/Resolved]
  - Dizziness [Recovered/Resolved]
  - Headache [Recovered/Resolved]

NARRATIVE: CASE EVENT DATE: 20121006
